FAERS Safety Report 5477487-9 (Version None)
Quarter: 2007Q4

REPORT INFORMATION
  Report Type: 
  Country: None (occurrence: None)
  Receive Date: 20071001
  Receipt Date: 20070918
  Transmission Date: 20080405
  Serious: Yes (Death)
  Sender: FDA-Public Use
  Company Number: GXKR2007NL08125

PATIENT
  Age: 36 Year
  Sex: Male

DRUGS (4)
  1. MYCOPHENOLATE MOFETIL [Suspect]
     Indication: IMMUNOSUPPRESSION
  2. CYCLOSPORINE [Suspect]
     Indication: IMMUNOSUPPRESSION
  3. PREDNISONE [Suspect]
     Indication: IMMUNOSUPPRESSION
  4. GANCICLOVIR [Concomitant]

REACTIONS (14)
  - ACUTE RESPIRATORY FAILURE [None]
  - ASCITES [None]
  - CARDIAC ARREST [None]
  - COMPLICATIONS OF TRANSPLANTED LIVER [None]
  - CYTOMEGALOVIRUS INFECTION [None]
  - DIRECT INFECTION TRANSMISSION [None]
  - GRAFT INFECTION [None]
  - PANCYTOPENIA [None]
  - PERITONITIS [None]
  - PYREXIA [None]
  - RENAL FAILURE [None]
  - RESPIRATORY FAILURE [None]
  - SPLENOMEGALY [None]
  - TOXOPLASMOSIS [None]
